FAERS Safety Report 18094902 (Version 2)
Quarter: 2020Q3

REPORT INFORMATION
  Report Type: Spontaneous
  Country: US (occurrence: US)
  Receive Date: 20200730
  Receipt Date: 20200807
  Transmission Date: 20201103
  Serious: Yes (Other)
  Sender: FDA-Public Use
  Company Number: US-PFIZER INC-2020288494

PATIENT
  Age: 11 Year
  Sex: Female

DRUGS (1)
  1. METHOTREXATE SODIUM. [Suspect]
     Active Substance: METHOTREXATE SODIUM
     Indication: JUVENILE IDIOPATHIC ARTHRITIS
     Dosage: 2 DF, WEEKLY (2 SHOTS A WEEK)

REACTIONS (6)
  - Injection site pain [Unknown]
  - Respiratory tract infection [Unknown]
  - Abdominal discomfort [Unknown]
  - Malaise [Unknown]
  - Thyroid disorder [Unknown]
  - Nausea [Unknown]
